FAERS Safety Report 21559729 (Version 1)
Quarter: 2022Q4

REPORT INFORMATION
  Report Type: Report from Study
  Country: US (occurrence: US)
  Receive Date: 20221107
  Receipt Date: 20221107
  Transmission Date: 20230113
  Serious: Yes (Other)
  Sender: FDA-Public Use
  Company Number: US-JNJFOC-20220864785

PATIENT
  Age: 35 Year
  Sex: Male
  Weight: 71.278 kg

DRUGS (5)
  1. SELEXIPAG [Suspect]
     Active Substance: SELEXIPAG
     Indication: Pulmonary arterial hypertension
     Route: 048
     Dates: start: 20191025
  2. SELEXIPAG [Suspect]
     Active Substance: SELEXIPAG
     Route: 048
     Dates: start: 201805
  3. SELEXIPAG [Suspect]
     Active Substance: SELEXIPAG
     Route: 048
     Dates: start: 20200710
  4. MACITENTAN [Suspect]
     Active Substance: MACITENTAN
     Indication: Pulmonary arterial hypertension
     Route: 048
     Dates: start: 201905
  5. MACITENTAN [Suspect]
     Active Substance: MACITENTAN
     Route: 048
     Dates: start: 20200710

REACTIONS (5)
  - Cardiac flutter [Unknown]
  - Dyspnoea [Unknown]
  - Wheezing [Unknown]
  - Dizziness [Unknown]
  - Product dose omission issue [Unknown]
